FAERS Safety Report 4350888-8 (Version None)
Quarter: 2004Q2

REPORT INFORMATION
  Report Type: 
  Country: None (occurrence: None)
  Receive Date: 20040427
  Receipt Date: 20040415
  Transmission Date: 20050107
  Serious: Yes (Hospitalization)
  Sender: FDA-Public Use
  Company Number: 2004-115154-NL

PATIENT
  Age: 80 Year
  Sex: Female

DRUGS (2)
  1. MIRTAZAPINE [Suspect]
     Indication: DEPRESSION
     Dosage: 30 MG QD
     Route: 048
     Dates: start: 20040401, end: 20040403
  2. CILAZAPRIL [Concomitant]

REACTIONS (5)
  - AGGRESSION [None]
  - AGITATION [None]
  - FALL [None]
  - INJURY [None]
  - INSOMNIA [None]
